FAERS Safety Report 11427762 (Version 2)
Quarter: 2015Q4

REPORT INFORMATION
  Report Type: Spontaneous
  Country: US (occurrence: US)
  Receive Date: 20150828
  Receipt Date: 20151005
  Transmission Date: 20160304
  Serious: No
  Sender: FDA-Public Use
  Company Number: US-AMGEN-USASP2015087692

PATIENT
  Age: 53 Year
  Sex: Female

DRUGS (1)
  1. ENBREL [Suspect]
     Active Substance: ETANERCEPT
     Indication: RHEUMATOID ARTHRITIS
     Dosage: 50 MG EVERY WEEK AS DIRECTED
     Route: 058
     Dates: start: 201507, end: 20150924

REACTIONS (5)
  - Activities of daily living impaired [Unknown]
  - Fatigue [Unknown]
  - Injection site pain [Unknown]
  - Drug ineffective [Unknown]
  - Apathy [Unknown]

NARRATIVE: CASE EVENT DATE: 2015
